FAERS Safety Report 7627182-2 (Version None)
Quarter: 2011Q3

REPORT INFORMATION
  Report Type: 
  Country: None (occurrence: None)
  Receive Date: 20110721
  Receipt Date: 20110711
  Transmission Date: 20111222
  Serious: Yes (Other)
  Sender: FDA-Public Use
  Company Number: DE-GENENTECH-321541

PATIENT
  Age: 39 Year
  Sex: Female

DRUGS (14)
  1. SIROLIMUS [Suspect]
     Indication: PROPHYLAXIS AGAINST TRANSPLANT REJECTION
     Dosage: UNK
     Route: 065
  2. MYCOPHENOLATE MOFETIL [Suspect]
     Indication: PROPHYLAXIS AGAINST TRANSPLANT REJECTION
     Dosage: UNK
     Route: 065
  3. TACROLIMUS [Suspect]
     Dosage: UNK
     Route: 065
  4. RITUXIMAB [Suspect]
     Dosage: UNK
     Route: 065
     Dates: start: 20070201
  5. TACROLIMUS [Suspect]
     Dosage: UNK
     Route: 065
  6. RITUXIMAB [Suspect]
     Indication: PRODUCT USED FOR UNKNOWN INDICATION
     Dosage: UNK
     Route: 065
     Dates: start: 20050901
  7. MYCOPHENOLATE MOFETIL [Suspect]
     Dosage: UNK
     Route: 065
  8. PREDNISONE [Suspect]
     Indication: PROPHYLAXIS AGAINST TRANSPLANT REJECTION
     Dosage: UNK
     Route: 065
  9. BASILIXIMAB [Concomitant]
     Indication: PRODUCT USED FOR UNKNOWN INDICATION
     Dosage: UNK
  10. MYCOPHENOLATE MOFETIL [Suspect]
     Dosage: UNK
     Route: 065
  11. TACROLIMUS [Suspect]
     Indication: PROPHYLAXIS AGAINST TRANSPLANT REJECTION
     Dosage: UNK
     Route: 065
  12. PREDNISONE [Suspect]
     Dosage: UNK
     Route: 065
  13. IMMUNE GLOBULIN IV NOS [Concomitant]
     Indication: PRODUCT USED FOR UNKNOWN INDICATION
     Dosage: UNK
     Route: 042
  14. PREDNISONE [Suspect]
     Dosage: UNK
     Route: 065

REACTIONS (1)
  - HEPATIC ECHINOCOCCIASIS [None]
